FAERS Safety Report 6836386-8 (Version None)
Quarter: 2010Q3

REPORT INFORMATION
  Report Type: 
  Country: None (occurrence: None)
  Receive Date: 20100713
  Receipt Date: 20100630
  Transmission Date: 20110219
  Serious: Yes (Death)
  Sender: FDA-Public Use
  Company Number: US-ELI_LILLY_AND_COMPANY-US201007000428

PATIENT
  Sex: Female

DRUGS (7)
  1. CYMBALTA [Suspect]
     Indication: DEPRESSION
     Dosage: 30 MG, UNK
  2. ELAVIL [Concomitant]
     Dosage: 300 MG, UNK
  3. SEROQUEL [Concomitant]
     Dosage: 400 MG, UNK
  4. ROZEREM [Concomitant]
  5. PRILOSEC [Concomitant]
  6. TRICOR [Concomitant]
  7. PREDNISONE [Concomitant]
     Dosage: 60 MG, UNK

REACTIONS (6)
  - ARRHYTHMIA [None]
  - BLOOD CHOLESTEROL INCREASED [None]
  - BLOOD TRIGLYCERIDES INCREASED [None]
  - DEATH [None]
  - ELECTROCARDIOGRAM QT PROLONGED [None]
  - RASH [None]
